FAERS Safety Report 8961096 (Version 1)
Quarter: 2012Q4

REPORT INFORMATION
  Report Type: 
  Country: US (occurrence: US)
  Receive Date: 20121212
  Receipt Date: 20121212
  Transmission Date: 20130627
  Serious: Yes (Other)
  Sender: FDA-Public Use
  Company Number: US-PFIZER INC-2012312370

PATIENT
  Age: 56 Year
  Sex: Female
  Weight: 145.1 kg

DRUGS (7)
  1. NORVASC [Suspect]
     Indication: BLOOD PRESSURE HIGH
     Dosage: 10 mg, 1x/day
     Route: 048
     Dates: start: 2011
  2. ACCURETIC [Suspect]
     Indication: BLOOD PRESSURE HIGH
     Dosage: 20/25 mg, 1x/day
     Route: 048
     Dates: start: 2011
  3. ASPIRIN [Concomitant]
     Dosage: 325 mg, UNK
  4. ATENOLOL [Concomitant]
     Indication: BLOOD PRESSURE HIGH
     Dosage: 50 mg, UNK
  5. METFORMIN [Concomitant]
     Dosage: 500 mg, 2x/day
  6. TYLENOL [Concomitant]
     Dosage: 500 mg, UNK
  7. PRAVACHOL [Concomitant]
     Dosage: UNK

REACTIONS (3)
  - Cerebrovascular accident [Unknown]
  - Dizziness [Unknown]
  - Pain [Unknown]
